FAERS Safety Report 8567803 (Version 5)
Quarter: 2012Q4

REPORT INFORMATION
  Report Type: 
  Country: US (occurrence: US)
  Receive Date: 20120518
  Receipt Date: 20121114
  Transmission Date: 20130627
  Serious: Yes (Death, Hospitalization)
  Sender: FDA-Public Use
  Company Number: US-BIOGENIDEC-2012BI016583

PATIENT
  Age: 34 Year
  Sex: Female

DRUGS (2)
  1. TYSABRI [Suspect]
     Indication: MULTIPLE SCLEROSIS
     Route: 042
     Dates: start: 20090721, end: 20111228
  2. TYSABRI [Suspect]
     Indication: MULTIPLE SCLEROSIS
     Route: 042
     Dates: end: 20120406

REACTIONS (7)
  - Death [Fatal]
  - Respiratory arrest [Recovered/Resolved]
  - Septic shock [Recovered/Resolved]
  - Pneumonia aspiration [Recovered/Resolved]
  - Myoclonus [Recovered/Resolved]
  - Coma [Recovered/Resolved]
  - Convulsion [Recovered/Resolved]
